FAERS Safety Report 5478025-7 (Version None)
Quarter: 2007Q4

REPORT INFORMATION
  Report Type: 
  Country: None (occurrence: None)
  Receive Date: 20071005
  Receipt Date: 20070924
  Transmission Date: 20080405
  Serious: Yes (Hospitalization, Other)
  Sender: FDA-Public Use
  Company Number: FR-AMGEN-UK241428

PATIENT
  Age: 45 Year
  Sex: Male

DRUGS (12)
  1. NEUPOGEN [Suspect]
     Indication: NEUTROPENIA
     Route: 058
     Dates: start: 20070608, end: 20070622
  2. TARGOCID [Suspect]
     Route: 042
     Dates: start: 20070611, end: 20070618
  3. VALGANCICLOVIR HCL [Suspect]
     Route: 048
     Dates: start: 20070612, end: 20070622
  4. KIVEXA [Concomitant]
  5. NORVIR [Concomitant]
  6. SUSTIVA [Concomitant]
  7. PREZISTA [Concomitant]
  8. IMOVANE [Concomitant]
  9. LEXOMIL [Concomitant]
  10. MARAVIROC [Concomitant]
     Dates: start: 20070705
  11. CASPOFUNGIN [Concomitant]
  12. CIDOFOVIR [Concomitant]

REACTIONS (12)
  - CENTRAL LINE INFECTION [None]
  - DERMATITIS EXFOLIATIVE [None]
  - DYSPHAGIA [None]
  - ENTEROCOCCAL INFECTION [None]
  - ESCHERICHIA BACTERAEMIA [None]
  - LYMPHANGITIS [None]
  - METABOLIC ACIDOSIS [None]
  - PYREXIA [None]
  - RASH SCARLATINIFORM [None]
  - RENAL FAILURE ACUTE [None]
  - RENAL TUBULAR DISORDER [None]
  - VOMITING [None]
